FAERS Safety Report 11937581 (Version 4)
Quarter: 2016Q3

REPORT INFORMATION
  Report Type: Report from Study
  Country: US (occurrence: US)
  Receive Date: 20160122
  Receipt Date: 20160803
  Transmission Date: 20161109
  Serious: No
  Sender: FDA-Public Use
  Company Number: US-AMGEN-USASL2016005432

PATIENT
  Age: 68 Year
  Sex: Male

DRUGS (2)
  1. ENBREL [Suspect]
     Active Substance: ETANERCEPT
     Dosage: UNK
     Route: 065
  2. ENBREL [Suspect]
     Active Substance: ETANERCEPT
     Indication: RHEUMATOID ARTHRITIS
     Dosage: 50 MG, QWK
     Route: 065
     Dates: start: 2007

REACTIONS (7)
  - Wrong technique in product usage process [Unknown]
  - Injection site haemorrhage [Unknown]
  - Frustration tolerance decreased [Unknown]
  - Underdose [Unknown]
  - Drug dose omission [Unknown]
  - Injection site discomfort [Unknown]
  - Device issue [Unknown]

NARRATIVE: CASE EVENT DATE: 20160115
